FAERS Safety Report 4690949-7 (Version None)
Quarter: 2005Q2

REPORT INFORMATION
  Report Type: 
  Country: None (occurrence: None)
  Receive Date: 20050613
  Receipt Date: 20050602
  Transmission Date: 20051028
  Serious: Yes (Hospitalization)
  Sender: FDA-Public Use
  Company Number: 2005US000520

PATIENT
  Age: 70 Year
  Sex: Male

DRUGS (16)
  1. PROGRAF [Suspect]
     Indication: PROPHYLAXIS AGAINST TRANSPLANT REJECTION
     Dosage: 11.00 MG, BID, ORAL
     Route: 048
     Dates: start: 20050325
  2. MYCOPHENOLATE MOFETIL (MYCOPHENOLATE MOFETIL) [Suspect]
     Indication: PROPHYLAXIS AGAINST TRANSPLANT REJECTION
     Dosage: 1000.00 MG,BID, ORAL
     Route: 048
     Dates: start: 20050325
  3. SIMULECT [Suspect]
     Indication: PROPHYLAXIS AGAINST TRANSPLANT REJECTION
     Dosage: 20.00 MG, TOTAL DOSE, IV NOS
     Route: 042
     Dates: start: 20050324, end: 20050324
  4. DECADRON [Suspect]
     Indication: PROPHYLAXIS AGAINST TRANSPLANT REJECTION
     Dosage: 40.00 MG, UID/QD, IV NOS
     Route: 042
     Dates: start: 20050324
  5. ALBUTEROL [Concomitant]
  6. KAYEXALATE [Concomitant]
  7. EPOGEN [Concomitant]
  8. PLENDIL [Concomitant]
  9. ZANTAC [Concomitant]
  10. REGLAN  /USA/ (METOCLOPRAMIDE HYDROCHLORIDE) [Concomitant]
  11. ATENOLOL [Concomitant]
  12. ZOCOR [Concomitant]
  13. ISORDIL [Concomitant]
  14. GANCICLOVIR (GANCICLOVIR0 [Concomitant]
  15. MYCELEX [Concomitant]
  16. ALLEGRA [Concomitant]

REACTIONS (4)
  - CARDIAC FAILURE CONGESTIVE [None]
  - MYOCARDIAL INFARCTION [None]
  - PULMONARY CONGESTION [None]
  - PULMONARY OEDEMA [None]
